FAERS Safety Report 6820087-6 (Version None)
Quarter: 2010Q3

REPORT INFORMATION
  Report Type: 
  Country: None (occurrence: None)
  Receive Date: 20100707
  Receipt Date: 20100706
  Transmission Date: 20110219
  Serious: Yes (Disabling)
  Sender: FDA-Public Use
  Company Number: B0663971A

PATIENT
  Age: 58 Year
  Sex: Female

DRUGS (5)
  1. ACYCLOVIR [Suspect]
     Indication: SKIN LESION
     Dosage: 600MG PER DAY
     Route: 048
     Dates: start: 20100618, end: 20100623
  2. TRAMADOL [Concomitant]
     Indication: PAIN
     Dosage: 400MG PER DAY
     Route: 048
  3. ZOPICLONE [Concomitant]
     Indication: SLEEP DISORDER
     Route: 048
  4. DIAZEPAM [Concomitant]
     Dosage: 15MG PER DAY
     Route: 048
  5. LEVOTHYROXINE SODIUM [Concomitant]
     Indication: HYPOTHYROIDISM
     Dosage: 100MCG PER DAY
     Route: 048

REACTIONS (2)
  - MUSCLE SPASMS [None]
  - PARAESTHESIA [None]
